FAERS Safety Report 5568509-5 (Version None)
Quarter: 2007Q4

REPORT INFORMATION
  Report Type: 
  Country: None (occurrence: None)
  Receive Date: 20071220
  Receipt Date: 20071212
  Transmission Date: 20080405
  Serious: Yes (Hospitalization)
  Sender: FDA-Public Use
  Company Number: ES-ROCHE-532104

PATIENT
  Age: 79 Year
  Sex: Male

DRUGS (2)
  1. BONIVA [Suspect]
     Indication: OSTEOPOROSIS
     Route: 048
     Dates: start: 20070601
  2. ACTONEL [Suspect]
     Indication: OSTEOPOROSIS
     Route: 065
     Dates: start: 20040101, end: 20070501

REACTIONS (4)
  - GASTROINTESTINAL HAEMORRHAGE [None]
  - HEPATIC CIRRHOSIS [None]
  - HEPATOTOXICITY [None]
  - VARICES OESOPHAGEAL [None]
